FAERS Safety Report 7347602-0 (Version None)
Quarter: 2011Q1

REPORT INFORMATION
  Report Type: 
  Country: None (occurrence: None)
  Receive Date: 20110311
  Receipt Date: 20110302
  Transmission Date: 20110831
  Serious: Yes (Hospitalization, Other)
  Sender: FDA-Public Use
  Company Number: US-GENENTECH-301814

PATIENT
  Sex: Female
  Weight: 96.8 kg

DRUGS (24)
  1. XOLAIR [Suspect]
     Indication: ASTHMA
     Dosage: 300 MG, Q4W
     Route: 058
     Dates: start: 20100413
  2. ZYFLO [Concomitant]
     Indication: ASTHMA
     Dosage: UNK TABLET, QID
     Dates: start: 20090227
  3. ALVESCO [Concomitant]
     Indication: ASTHMA
     Dosage: UNK
     Dates: start: 20100127
  4. SYMBICORT [Concomitant]
     Indication: PRODUCT USED FOR UNKNOWN INDICATION
  5. COZAAR [Concomitant]
     Indication: PRODUCT USED FOR UNKNOWN INDICATION
  6. FLONASE [Concomitant]
     Indication: HYPERSENSITIVITY
     Dosage: UNK
     Dates: start: 20090227
  7. PAXIL [Concomitant]
     Indication: PRODUCT USED FOR UNKNOWN INDICATION
  8. VITAMIN D [Concomitant]
     Indication: PRODUCT USED FOR UNKNOWN INDICATION
  9. VENTOLIN [Concomitant]
     Indication: PRODUCT USED FOR UNKNOWN INDICATION
  10. XOPENEX [Concomitant]
     Indication: ASTHMA
     Dosage: UNK
     Dates: start: 20090227
  11. MENEST [Concomitant]
     Indication: PRODUCT USED FOR UNKNOWN INDICATION
  12. HYDROCHLOROTHIAZIDE [Concomitant]
     Indication: PRODUCT USED FOR UNKNOWN INDICATION
  13. PROTONIX [Concomitant]
     Indication: PRODUCT USED FOR UNKNOWN INDICATION
  14. ALLEGRA [Concomitant]
     Indication: HYPERSENSITIVITY
     Dosage: UNK TABLET, QD
     Dates: start: 20090227
  15. XOLAIR [Suspect]
     Dosage: UNK
     Dates: start: 20100511
  16. PULMICORT [Concomitant]
     Indication: ASTHMA
     Dosage: UNK
     Dates: start: 20100127
  17. PATANASE [Concomitant]
     Indication: PRODUCT USED FOR UNKNOWN INDICATION
  18. MESTINON [Concomitant]
     Indication: PRODUCT USED FOR UNKNOWN INDICATION
  19. PREDNISONE TAB [Concomitant]
     Indication: ASTHMA
     Dosage: 20 MG, QD
     Dates: start: 20090227
  20. XYZAL [Concomitant]
     Indication: PRODUCT USED FOR UNKNOWN INDICATION
  21. NORVASC [Concomitant]
     Indication: PRODUCT USED FOR UNKNOWN INDICATION
  22. MULTI-VITAMIN [Concomitant]
     Indication: PRODUCT USED FOR UNKNOWN INDICATION
  23. BROVANA [Concomitant]
     Indication: ASTHMA
     Dosage: UNK
     Dates: start: 20100127
  24. LOVAZA [Concomitant]
     Indication: PRODUCT USED FOR UNKNOWN INDICATION

REACTIONS (8)
  - BLOOD PRESSURE DECREASED [None]
  - THROAT TIGHTNESS [None]
  - BLINDNESS [None]
  - HEADACHE [None]
  - URTICARIA [None]
  - PNEUMONIA [None]
  - DYSPNOEA [None]
  - BLOOD PRESSURE INCREASED [None]
